FAERS Safety Report 9676022 (Version 1)
Quarter: 2013Q4

REPORT INFORMATION
  Report Type: Spontaneous
  Country: BR (occurrence: BR)
  Receive Date: 20131107
  Receipt Date: 20131107
  Transmission Date: 20140711
  Serious: Yes (Other)
  Sender: FDA-Public Use
  Company Number: PHHY2013BR126565

PATIENT
  Age: 61 Year
  Sex: Female

DRUGS (1)
  1. DIOVAN [Suspect]
     Dosage: 1 DF (160/12.5 MG, AS REPORTED), DAIY
     Route: 048
     Dates: end: 201306

REACTIONS (3)
  - Bundle branch block [Unknown]
  - Heart rate decreased [Unknown]
  - Fatigue [Unknown]
